FAERS Safety Report 9008046 (Version 1)
Quarter: 2013Q1

REPORT INFORMATION
  Report Type: Spontaneous
  Country: US (occurrence: US)
  Receive Date: 20130111
  Receipt Date: 20130111
  Transmission Date: 20140127
  Serious: No
  Sender: FDA-Public Use
  Company Number: US-PFIZER INC-2013009270

PATIENT
  Age: 71 Year
  Sex: Female
  Weight: 90 kg

DRUGS (3)
  1. CHANTIX [Suspect]
     Indication: SMOKING CESSATION THERAPY
     Dosage: 0.5 MG, DAILY
     Route: 048
     Dates: start: 20120720, end: 201207
  2. ZOLOFT [Suspect]
     Indication: DEPRESSION
     Dosage: 100 MG, DAILY
  3. LISINOPRIL [Concomitant]
     Indication: BLOOD PRESSURE ABNORMAL
     Dosage: 5 MG, DAILY

REACTIONS (3)
  - Drug administration error [Unknown]
  - Drug ineffective [Unknown]
  - Muscle twitching [Unknown]
